FAERS Safety Report 7913186-9 (Version None)
Quarter: 2011Q4

REPORT INFORMATION
  Report Type: 
  Country: None (occurrence: None)
  Receive Date: 20111114
  Receipt Date: 20111108
  Transmission Date: 20120403
  Serious: Yes (Other)
  Sender: FDA-Public Use
  Company Number: GXKR2011DE003266

PATIENT

DRUGS (2)
  1. AMANTADINE HCL [Suspect]
     Indication: PARKINSON'S DISEASE
     Route: 048
     Dates: start: 20110101, end: 20110501
  2. PRAMIPEXOLE DIHYDROCHLORIDE [Suspect]
     Indication: PARKINSON'S DISEASE
     Dosage: 3.15MG + 1.15 MG
     Route: 048
     Dates: start: 20090101, end: 20110501

REACTIONS (3)
  - ALOPECIA [None]
  - DEPRESSION [None]
  - OEDEMA PERIPHERAL [None]
